FAERS Safety Report 9260872 (Version 1)
Quarter: 2013Q2

REPORT INFORMATION
  Report Type: Spontaneous
  Country: US (occurrence: US)
  Receive Date: 20130429
  Receipt Date: 20130429
  Transmission Date: 20140414
  Serious: No
  Sender: FDA-Public Use
  Company Number: US-AMGEN-USASP2012035352

PATIENT
  Sex: Female

DRUGS (8)
  1. SENSIPAR [Suspect]
     Indication: PRODUCT USED FOR UNKNOWN INDICATION
     Dosage: UNK
     Dates: start: 201105
  2. ISOSORBIDE [Concomitant]
     Dosage: UNK
  3. METOPROLOL [Concomitant]
  4. LISINOPRIL [Concomitant]
  5. GABAPENTIN [Concomitant]
     Indication: NEUROPATHY PERIPHERAL
  6. ASPIRIN [Concomitant]
  7. NOVOLOG MIX [Concomitant]
  8. INSULIN GLARGINE [Concomitant]

REACTIONS (5)
  - Sensory disturbance [Recovering/Resolving]
  - Sensation of heaviness [Recovering/Resolving]
  - Skin exfoliation [Unknown]
  - Hypoaesthesia [Recovering/Resolving]
  - Paraesthesia [Recovering/Resolving]
